FAERS Safety Report 8821867 (Version 1)
Quarter: 2012Q4

REPORT INFORMATION
  Report Type: 
  Country: US (occurrence: US)
  Receive Date: 20121002
  Receipt Date: 20121002
  Transmission Date: 20130627
  Serious: Yes (Other)
  Sender: FDA-Public Use
  Company Number: US-MERCK-1210USA000596

PATIENT
  Age: 72 Year
  Sex: Female

DRUGS (17)
  1. JANUVIA [Suspect]
  2. VICTOZA [Suspect]
     Dosage: 6 mg/ml, UNK
     Route: 058
  3. QUINAPRIL HYDROCHLORIDE [Concomitant]
  4. CARVEDILOL [Concomitant]
  5. FUROSEMIDE [Concomitant]
  6. NITROGLYCERIN [Concomitant]
  7. HYDROXYCHLOROQUINE SULFATE [Concomitant]
  8. GLUCOSAMINE [Concomitant]
  9. ALLOPURINOL [Concomitant]
  10. CRESTOR [Concomitant]
  11. LEVONORGESTREL [Concomitant]
  12. SPIRONOLACTONE [Concomitant]
  13. CHOLECALCIFEROL [Concomitant]
  14. ASPIRIN [Concomitant]
  15. DIOVAN [Concomitant]
  16. LANTUS [Concomitant]
  17. ESTER-C [Concomitant]

REACTIONS (4)
  - Hyperhidrosis [Unknown]
  - Pancreatitis [Unknown]
  - Constipation [Unknown]
  - Asthenia [Unknown]
